FAERS Safety Report 25215258 (Version 1)
Quarter: 2025Q2

REPORT INFORMATION
  Report Type: Report from Study
  Country: CA (occurrence: CA)
  Receive Date: 20250418
  Receipt Date: 20250418
  Transmission Date: 20250717
  Serious: Yes (Death)
  Sender: BAYER HEALTHCARE PHARMACEUTICALS INC.
  Company Number: CA-BAYER-2025A053262

PATIENT
  Age: 77 Year
  Sex: Male

DRUGS (7)
  1. ADEMPAS [Suspect]
     Active Substance: RIOCIGUAT
     Indication: Pulmonary hypertension
     Dates: start: 20230414
  2. APIXABAN [Concomitant]
     Active Substance: APIXABAN
  3. OFEV [Concomitant]
     Active Substance: NINTEDANIB
  4. FUROSEMIDE [Concomitant]
     Active Substance: FUROSEMIDE
  5. ALLOPURINOL [Concomitant]
     Active Substance: ALLOPURINOL
  6. LORAZEPAM [Concomitant]
     Active Substance: LORAZEPAM
  7. PANTOPRAZOLE [Concomitant]
     Active Substance: PANTOPRAZOLE

REACTIONS (1)
  - Death [Fatal]

NARRATIVE: CASE EVENT DATE: 20250407
